FAERS Safety Report 22043881 (Version 1)
Quarter: 2023Q1

REPORT INFORMATION
  Report Type: Spontaneous
  Country: IN (occurrence: IN)
  Receive Date: 20230228
  Receipt Date: 20230228
  Transmission Date: 20230417
  Serious: Yes (Hospitalization)
  Sender: FDA-Public Use
  Company Number: IN-Accord-301700

PATIENT
  Age: 24 Year
  Sex: Female

DRUGS (2)
  1. CLOZAPINE [Suspect]
     Active Substance: CLOZAPINE
     Dosage: 40 TABLETS (4000 MG)
  2. BLONANSERIN [Suspect]
     Active Substance: BLONANSERIN
     Dosage: 70 TABLETS (560 MG)

REACTIONS (6)
  - Intentional overdose [Unknown]
  - Somnolence [Recovered/Resolved]
  - Confusional state [Recovered/Resolved]
  - Sinus tachycardia [Recovered/Resolved]
  - Dysarthria [Recovered/Resolved]
  - Hypokalaemia [Recovered/Resolved]

NARRATIVE: CASE EVENT DATE: 20210801
